FAERS Safety Report 10042528 (Version 1)
Quarter: 2014Q1

REPORT INFORMATION
  Report Type: Spontaneous
  Country: US (occurrence: None)
  Receive Date: 20140325
  Receipt Date: 20140325
  Transmission Date: 20141002
  Serious: Yes (Other)
  Sender: FDA-Public Use
  Company Number: 2014-000785

PATIENT
  Age: 18 Year
  Sex: Female

DRUGS (3)
  1. LO LESTRIN FE (NORETHINDRONE ACETATE, ETHINYLESTRADIOL, FERROUS FUMARATE) TABLET, 1000/10UG [Suspect]
     Indication: DYSMENORRHOEA
     Route: 048
     Dates: start: 2013
  2. LO LESTRIN FE (NORETHINDRONE ACETATE, ETHINYLESTRADIOL, FERROUS FUMARATE) TABLET, 1000/10UG [Suspect]
     Indication: MENSTRUATION IRREGULAR
     Route: 048
     Dates: start: 2013
  3. VITAMINS NOS [Concomitant]

REACTIONS (1)
  - Fibroadenoma of breast [None]
